FAERS Safety Report 21873492 (Version 1)
Quarter: 2023Q1

REPORT INFORMATION
  Report Type: Spontaneous
  Country: JP (occurrence: JP)
  Receive Date: 20230117
  Receipt Date: 20230117
  Transmission Date: 20230417
  Serious: Yes (Death, Other)
  Sender: FDA-Public Use
  Company Number: JP-ABBVIE-4273278

PATIENT
  Age: 80 Year
  Sex: Male

DRUGS (8)
  1. VENCLEXTA [Suspect]
     Active Substance: VENETOCLAX
     Indication: Acute myeloid leukaemia
     Dosage: 10 MILLIGRAM
     Route: 048
     Dates: start: 20220124
  2. VENCLEXTA [Suspect]
     Active Substance: VENETOCLAX
     Indication: Acute myeloid leukaemia
     Dosage: 50 MILLIGRAM
     Route: 048
  3. VENCLEXTA [Suspect]
     Active Substance: VENETOCLAX
     Indication: Acute myeloid leukaemia
     Dosage: 20 MILLIGRAM
     Route: 048
  4. AZACITIDINE [Concomitant]
     Active Substance: AZACITIDINE
     Indication: Acute myeloid leukaemia
     Dosage: 75 MG/M2
     Route: 058
  5. LEVOFLOXACIN HEMIHYDRATE [Concomitant]
     Active Substance: LEVOFLOXACIN
     Indication: Prophylaxis
     Route: 048
  6. SULFAMETHOXAZOLE AND TRIMETHOPRIM [Concomitant]
     Active Substance: SULFAMETHOXAZOLE\TRIMETHOPRIM
     Indication: Prophylaxis
     Route: 048
  7. ACYCLOVIR [Concomitant]
     Active Substance: ACYCLOVIR
     Indication: Prophylaxis
     Route: 048
  8. ITRACONAZOLE [Concomitant]
     Active Substance: ITRACONAZOLE
     Indication: Prophylaxis
     Route: 048

REACTIONS (3)
  - Infection [Fatal]
  - Blood test abnormal [Unknown]
  - Febrile neutropenia [Unknown]
